FAERS Safety Report 4938290-9 (Version None)
Quarter: 2006Q1

REPORT INFORMATION
  Report Type: 
  Country: None (occurrence: None)
  Receive Date: 20060309
  Receipt Date: 20060208
  Transmission Date: 20060701
  Serious: Yes (Hospitalization)
  Sender: FDA-Public Use
  Company Number: US-GLAXOSMITHKLINE-A0592863A

PATIENT
  Age: 43 Year
  Sex: Female
  Weight: 75 kg

DRUGS (4)
  1. WELLBUTRIN XL [Suspect]
     Indication: DEPRESSION
     Dosage: 300MG PER DAY
     Route: 048
     Dates: start: 20060117, end: 20060206
  2. HYDROCHLOROTHIAZIDE [Concomitant]
  3. AVAPRO [Concomitant]
  4. ESTROGEN [Concomitant]

REACTIONS (4)
  - BLOOD SODIUM DECREASED [None]
  - CONVULSION [None]
  - INCONTINENCE [None]
  - TREMOR [None]
